FAERS Safety Report 7601278-3 (Version None)
Quarter: 2011Q3

REPORT INFORMATION
  Report Type: 
  Country: None (occurrence: None)
  Receive Date: 20110711
  Receipt Date: 20110707
  Transmission Date: 20111222
  Serious: Yes (Death)
  Sender: FDA-Public Use
  Company Number: PHHY2011GB60248

PATIENT
  Age: 2 Month
  Sex: Female

DRUGS (2)
  1. ESCITALOPRAM [Suspect]
     Dosage: 20 MG, QD
  2. CITALOPRAM [Suspect]
     Dosage: 20 MG, QD
     Route: 064

REACTIONS (3)
  - CONGENITAL PULMONARY VALVE ATRESIA [None]
  - CARDIAC SEPTAL DEFECT [None]
  - MATERNAL EXPOSURE DURING PREGNANCY [None]
